FAERS Safety Report 4745713-7 (Version None)
Quarter: 2005Q3

REPORT INFORMATION
  Report Type: 
  Country: None (occurrence: None)
  Receive Date: 20050815
  Receipt Date: 20050815
  Transmission Date: 20060218
  Serious: Yes (Death)
  Sender: FDA-Public Use
  Company Number: None

PATIENT
  Age: 80 Year
  Sex: Male
  Weight: 74.2085 kg

DRUGS (3)
  1. NATRECOR [Suspect]
     Indication: CARDIAC FAILURE CONGESTIVE
     Dosage: LOAD 2 MCG /KG, 0.01 MG/KG /MIN
     Dates: start: 20050808, end: 20050809
  2. ZAROXOLYN [Concomitant]
  3. LASIX [Concomitant]

REACTIONS (2)
  - BLOOD PRESSURE DECREASED [None]
  - CONFUSIONAL STATE [None]
